FAERS Safety Report 11309170 (Version 2)
Quarter: 2015Q4

REPORT INFORMATION
  Report Type: Spontaneous
  Country: None (occurrence: DO)
  Receive Date: 20150724
  Receipt Date: 20151201
  Transmission Date: 20160304
  Serious: No
  Sender: FDA-Public Use
  Company Number: DO-MERCK KGAA-1040684

PATIENT

DRUGS (1)
  1. NOVOTHYROX [Suspect]
     Active Substance: LEVOTHYROXINE SODIUM

REACTIONS (4)
  - Tachycardia [None]
  - Extrasystoles [None]
  - Arrhythmia [None]
  - Hypothyroidism [None]
